FAERS Safety Report 23600193 (Version 1)
Quarter: 2024Q1

REPORT INFORMATION
  Report Type: Spontaneous
  Country: FR (occurrence: FR)
  Receive Date: 20240306
  Receipt Date: 20240306
  Transmission Date: 20240410
  Serious: Yes (Hospitalization)
  Sender: FDA-Public Use
  Company Number: FR-AFSSAPS-AVPA2023000729

PATIENT
  Age: 46 Year
  Sex: Female

DRUGS (3)
  1. PREGABALIN [Suspect]
     Active Substance: PREGABALIN
     Indication: Product used for unknown indication
     Dosage: 1200MG/DAY
     Route: 048
     Dates: start: 2016
  2. PRAZEPAM [Suspect]
     Active Substance: PRAZEPAM
     Indication: Product used for unknown indication
     Dosage: 80 MG/DAY
     Route: 048
     Dates: start: 2003
  3. ACETAMINOPHEN\CODEINE PHOSPHATE [Suspect]
     Active Substance: ACETAMINOPHEN\CODEINE PHOSPHATE
     Indication: Product used for unknown indication
     Dosage: 6 TO 8 TABLETS PER DAY
     Route: 048
     Dates: start: 1994

REACTIONS (1)
  - Drug detoxification [Recovered/Resolved]

NARRATIVE: CASE EVENT DATE: 20220530
